FAERS Safety Report 10367537 (Version 4)
Quarter: 2014Q4

REPORT INFORMATION
  Report Type: Spontaneous
  Country: GB (occurrence: None)
  Receive Date: 20140805
  Receipt Date: 20141201
  Transmission Date: 20150528
  Serious: Yes (Disabling)
  Sender: FDA-Public Use
  Company Number: 2463228

PATIENT
  Age: 72 Year
  Sex: Female
  Weight: 93.7 kg

DRUGS (15)
  1. (CHLORPHENAMINE) [Concomitant]
  2. CLOTRIMAZOLE. [Concomitant]
     Active Substance: CLOTRIMAZOLE
  3. (COLISTIMETHATE SODIUM) [Suspect]
     Active Substance: COLISTIMETHATE SODIUM
     Indication: BACTERIAL DISEASE CARRIER
     Dosage: 2 MIU IU (1,000,000S) , 3 DAY
     Dates: start: 20110205, end: 201102
  4. ALENDRONATE [Concomitant]
     Active Substance: ALENDRONATE SODIUM
  5. (MEROPENEM) [Suspect]
     Active Substance: MEROPENEM
     Indication: BRONCHIECTASIS
     Dosage: 2000 MG MILLIGRAM(S) , 1 HOUR
     Route: 042
     Dates: end: 20110215
  6. CALCIUM CARBONATE W/COLECALCIFEROL [Concomitant]
     Active Substance: CALCIUM CARBONATE\CHOLECALCIFEROL
  7. CARBOCISTEINE [Concomitant]
     Active Substance: CARBOCYSTEINE
  8. FUROSEMIDE. [Concomitant]
     Active Substance: FUROSEMIDE
  9. TIOTROPIUM [Concomitant]
     Active Substance: TIOTROPIUM
  10. PREDNISOLONE. [Concomitant]
     Active Substance: PREDNISOLONE
  11. IPRATROPIUM [Concomitant]
     Active Substance: IPRATROPIUM
  12. MONTELUKAST [Concomitant]
     Active Substance: MONTELUKAST SODIUM
  13. (COLISTIMETHATE SODIUM) [Suspect]
     Active Substance: COLISTIMETHATE SODIUM
     Indication: BRONCHIECTASIS
     Dosage: 2 MIU IU (1,000,000S) , 3 DAY
     Dates: start: 20110205, end: 201102
  14. HEPARIN SODIUM. [Concomitant]
     Active Substance: HEPARIN SODIUM
  15. FLUTICASONE PROPIONATE W/SALMETEROL XINAFOATE [Concomitant]
     Active Substance: FLUTICASONE PROPIONATE\SALMETEROL XINAFOATE

REACTIONS (23)
  - Off label use [None]
  - Blood pressure increased [None]
  - Burning sensation [None]
  - Weight increased [None]
  - Balance disorder [None]
  - Discomfort [None]
  - Dizziness [None]
  - Medication error [None]
  - Oxygen saturation decreased [None]
  - Abasia [None]
  - Decreased appetite [None]
  - Nausea [None]
  - Oxygen saturation [None]
  - Secretion discharge [None]
  - White blood cell count increased [None]
  - Constipation [None]
  - Gait disturbance [None]
  - Prescribed overdose [None]
  - C-reactive protein increased [None]
  - Pain [None]
  - Fall [None]
  - Headache [None]
  - Rash [None]

NARRATIVE: CASE EVENT DATE: 20110205
